FAERS Safety Report 7047728-5 (Version None)
Quarter: 2010Q4

REPORT INFORMATION
  Report Type: 
  Country: None (occurrence: None)
  Receive Date: 20101015
  Receipt Date: 20101005
  Transmission Date: 20110411
  Serious: Yes (Death)
  Sender: FDA-Public Use
  Company Number: RU-ACTELION-A-CH2010-40334

PATIENT
  Age: 48 Year
  Sex: Female
  Weight: 80 kg

DRUGS (3)
  1. TRACLEER [Suspect]
     Indication: PULMONARY ARTERIAL HYPERTENSION
     Dosage: 125 MG, BID
     Route: 048
     Dates: start: 20100601, end: 20101001
  2. PRESTARIUM [Concomitant]
  3. CORDARONE [Concomitant]

REACTIONS (2)
  - MYOCARDIAL INFARCTION [None]
  - OPEN FRACTURE [None]
